FAERS Safety Report 16145570 (Version 1)
Quarter: 2019Q2

REPORT INFORMATION
  Report Type: Spontaneous
  Country: US (occurrence: US)
  Receive Date: 20190401
  Receipt Date: 20190401
  Transmission Date: 20190711
  Serious: Yes (Death, Life-Threatening, Hospitalization, Disabling)
  Sender: FDA-Public Use
  Company Number: None

PATIENT
  Age: 88 Year
  Sex: Female

DRUGS (5)
  1. NIACIN 1,000 MG [Concomitant]
  2. DILTIAZEM ER 120 MG [Concomitant]
     Dates: start: 20161001, end: 20190306
  3. LISINOPRIL 20 MG [Concomitant]
     Active Substance: LISINOPRIL
  4. ELIQUIS [Suspect]
     Active Substance: APIXABAN
     Indication: ATRIAL FIBRILLATION
     Route: 048
     Dates: start: 20161001, end: 20190306
  5. LEVOTHYROXINE 88 MCG [Concomitant]
     Active Substance: LEVOTHYROXINE

REACTIONS (2)
  - Haemorrhage intracranial [None]
  - Aphasia [None]

NARRATIVE: CASE EVENT DATE: 20190306
